FAERS Safety Report 9311499 (Version 2)
Quarter: 2013Q1

REPORT INFORMATION
  Report Type: Spontaneous
  Country: JP (occurrence: None)
  Receive Date: 20121204
  Receipt Date: 20130212
  Transmission Date: 20140127
  Serious: Yes (Other)
  Sender: FDA-Public Use
  Company Number: 2012-JP-0026

PATIENT
  Age: 80 Year
  Sex: Female

DRUGS (3)
  1. FARESTON [Suspect]
     Indication: BREAST CANCER
     Dates: start: 20120118, end: 20120524
  2. ACETAMINOPHEN (ACETAMINOPHEN) [Concomitant]
  3. OPSO (MORPHINE LINCTUS) [Concomitant]

REACTIONS (1)
  - Haematotoxicity [None]
